FAERS Safety Report 10535007 (Version 2)
Quarter: 2015Q1

REPORT INFORMATION
  Report Type: Spontaneous
  Country: IT (occurrence: IT)
  Receive Date: 20141022
  Receipt Date: 20150130
  Transmission Date: 20150720
  Serious: Yes (Hospitalization, Other)
  Sender: FDA-Public Use
  Company Number: IT-PFIZER INC-2014288468

PATIENT
  Age: 44 Year
  Sex: Male

DRUGS (2)
  1. XANAX [Suspect]
     Active Substance: ALPRAZOLAM
     Dosage: 20 ML, SINGLE
     Route: 048
     Dates: start: 20141016, end: 20141016
  2. EUTIMIL [Suspect]
     Active Substance: PAROXETINE HYDROCHLORIDE
     Dosage: 3 DF, SINGLE
     Route: 048
     Dates: start: 20141016, end: 20141016

REACTIONS (4)
  - Bradyphrenia [Recovering/Resolving]
  - Intentional self-injury [Recovering/Resolving]
  - Drug abuse [Recovering/Resolving]
  - Bradykinesia [Recovering/Resolving]

NARRATIVE: CASE EVENT DATE: 20141016
